FAERS Safety Report 4744547-7 (Version None)
Quarter: 2005Q3

REPORT INFORMATION
  Report Type: 
  Country: None (occurrence: None)
  Receive Date: 20050812
  Receipt Date: 20050805
  Transmission Date: 20060218
  Serious: Yes (Congenital Anomaly, Other)
  Sender: FDA-Public Use
  Company Number: US-ABBOTT-05P-163-0307694-00

PATIENT
  Sex: Female
  Weight: 2.016 kg

DRUGS (6)
  1. NORVIR [Suspect]
     Indication: DRUG EXPOSURE DURING PREGNANCY
  2. ATAZANAVIR SULFATE [Suspect]
     Indication: DRUG EXPOSURE DURING PREGNANCY
  3. LAMIVUDINE [Suspect]
     Indication: DRUG EXPOSURE DURING PREGNANCY
  4. DIDANOSINE [Suspect]
     Indication: DRUG EXPOSURE DURING PREGNANCY
  5. TENOFOVIR [Suspect]
     Indication: DRUG EXPOSURE DURING PREGNANCY
  6. ZIDOVUDINE [Suspect]
     Indication: DRUG EXPOSURE DURING PREGNANCY

REACTIONS (6)
  - BRADYCARDIA [None]
  - BRADYCARDIA FOETAL [None]
  - CAESAREAN SECTION [None]
  - DRUG EXPOSURE DURING PREGNANCY [None]
  - FOETAL GROWTH RETARDATION [None]
  - PREMATURE BABY [None]
